FAERS Safety Report 14612576 (Version 5)
Quarter: 2018Q2

REPORT INFORMATION
  Report Type: Spontaneous
  Country: US (occurrence: US)
  Receive Date: 20180308
  Receipt Date: 20180507
  Transmission Date: 20180711
  Serious: No
  Sender: FDA-Public Use
  Company Number: US-GLAXOSMITHKLINE-US2018038371

PATIENT
  Sex: Male
  Weight: 73.16 kg

DRUGS (1)
  1. VENTOLIN HFA [Suspect]
     Active Substance: ALBUTEROL SULFATE
     Indication: PRODUCT USED FOR UNKNOWN INDICATION
     Dosage: UNK
     Route: 055
     Dates: start: 20180215

REACTIONS (5)
  - Product quality issue [Unknown]
  - Wrong technique in device usage process [Unknown]
  - Device defective [Unknown]
  - Underdose [Unknown]
  - Wrong technique in product usage process [Unknown]
